FAERS Safety Report 6071212-9 (Version None)
Quarter: 2009Q1

REPORT INFORMATION
  Report Type: 
  Country: None (occurrence: None)
  Receive Date: 20090209
  Receipt Date: 20090204
  Transmission Date: 20090719
  Serious: No
  Sender: FDA-Public Use
  Company Number: US-B.I. PHARMACEUTICALS,INC./RIDGEFIELD-2008-BP-17969BP

PATIENT
  Age: 63 Year
  Sex: Male
  Weight: 99 kg

DRUGS (7)
  1. SPIRIVA [Suspect]
     Indication: CHRONIC OBSTRUCTIVE PULMONARY DISEASE
     Dosage: 18MCG
     Route: 055
     Dates: start: 20070320
  2. SPIRIVA [Suspect]
     Indication: EMPHYSEMA
  3. ADVIL LIQUI-GELS [Concomitant]
  4. ALBUTEROL [Concomitant]
     Dates: start: 20060711
  5. CHANTIX [Concomitant]
     Dates: start: 20080109, end: 20080301
  6. LEVITRA [Concomitant]
     Dosage: 10MG
     Dates: start: 20071113
  7. ADVAIR DISKUS 100/50 [Concomitant]
     Dates: start: 20060711

REACTIONS (5)
  - DYSURIA [None]
  - ERECTILE DYSFUNCTION [None]
  - PROSTATIC SPECIFIC ANTIGEN INCREASED [None]
  - PROSTATITIS [None]
  - URINE FLOW DECREASED [None]
